FAERS Safety Report 11867901 (Version 1)
Quarter: 2015Q4

REPORT INFORMATION
  Report Type: Spontaneous
  Country: US (occurrence: US)
  Receive Date: 20151224
  Receipt Date: 20151224
  Transmission Date: 20160305
  Serious: Yes (Other)
  Sender: FDA-Public Use
  Company Number: US-SA-2015SA214532

PATIENT
  Age: 72 Year
  Sex: Female

DRUGS (1)
  1. LANTUS [Suspect]
     Active Substance: INSULIN GLARGINE
     Dosage: DOSE IS 50 IU IN MORNING AND 20 IU IN EVENING
     Route: 065
     Dates: start: 2000

REACTIONS (4)
  - Cardiac failure [Unknown]
  - Internal haemorrhage [Unknown]
  - Atrial fibrillation [Unknown]
  - Inappropriate schedule of drug administration [Unknown]
